FAERS Safety Report 6846866-7 (Version None)
Quarter: 2010Q3

REPORT INFORMATION
  Report Type: 
  Country: None (occurrence: None)
  Receive Date: 20100715
  Receipt Date: 20070919
  Transmission Date: 20110219
  Serious: No
  Sender: FDA-Public Use
  Company Number: US-PFIZER INC-2007079939

PATIENT
  Sex: Male
  Weight: 84.09 kg

DRUGS (4)
  1. CHANTIX [Suspect]
     Indication: SMOKING CESSATION THERAPY
     Dates: start: 20070906
  2. CARDIOVASCULAR SYSTEM DRUGS [Concomitant]
  3. ANTITHROMBOTIC AGENTS [Concomitant]
  4. CHOLESTEROL- AND TRIGLYCERIDE REDUCERS [Concomitant]

REACTIONS (4)
  - ABDOMINAL PAIN UPPER [None]
  - ABNORMAL DREAMS [None]
  - INSOMNIA [None]
  - NAUSEA [None]
